FAERS Safety Report 14412701 (Version 2)
Quarter: 2018Q2

REPORT INFORMATION
  Report Type: Spontaneous
  Country: CA (occurrence: CA)
  Receive Date: 20180119
  Receipt Date: 20180615
  Transmission Date: 20180711
  Serious: Yes (Other)
  Sender: FDA-Public Use
  Company Number: CA-CELLTRION INC.-2017CA007091

PATIENT

DRUGS (10)
  1. PLAQUENIL                          /00072602/ [Concomitant]
     Active Substance: HYDROXYCHLOROQUINE DIPHOSPHATE
     Dosage: 200 MG, BID
     Dates: start: 201606
  2. FOLIC ACID. [Concomitant]
     Active Substance: FOLIC ACID
     Dosage: 10 MG, DAILY
  3. INFLECTRA [Suspect]
     Active Substance: INFLIXIMAB-DYYB
     Dosage: 300 MG, CYCLIC (EVERY 0,2,6 WEEKS, THEN EVERY 8 WEEKS)
     Route: 065
     Dates: start: 20180517
  4. CITALOPRAM [Concomitant]
     Active Substance: CITALOPRAM HYDROBROMIDE
     Dosage: 20 MG, DAILY
     Dates: start: 201609
  5. INFLECTRA [Suspect]
     Active Substance: INFLIXIMAB-DYYB
     Dosage: 300 MG, CYCLIC (EVERY 0,2,6 WEEKS, THEN EVERY 8 WEEKS)
     Route: 042
     Dates: start: 20180112
  6. INFLECTRA [Suspect]
     Active Substance: INFLIXIMAB-DYYB
     Indication: RHEUMATOID ARTHRITIS
     Dosage: 300 MG, CYCLIC ( Q 0, 2, 6 WEEKS, THEN EVERY 8 WEEKS)
     Route: 042
     Dates: start: 20170421, end: 20170922
  7. PANTOPRAZOLE [Concomitant]
     Active Substance: PANTOPRAZOLE
     Dosage: 40 MG, DAILY
     Dates: start: 201609
  8. METHOTREXATE SODIUM. [Concomitant]
     Active Substance: METHOTREXATE SODIUM
     Indication: PRODUCT USED FOR UNKNOWN INDICATION
     Dosage: 25 MG, WEEKLY
     Route: 065
     Dates: start: 201607
  9. SANDOZ ROSUVASTATIN [Concomitant]
     Indication: HYPERTENSION
     Dosage: 5 MG, DAILY
     Dates: start: 2013
  10. SANDOZ LOSARTAN [Concomitant]
     Indication: BLOOD CHOLESTEROL INCREASED
     Dosage: 25 MG, DAILY
     Route: 065
     Dates: start: 2013

REACTIONS (5)
  - Inappropriate schedule of drug administration [Unknown]
  - Pain [Not Recovered/Not Resolved]
  - Avulsion fracture [Unknown]
  - Therapeutic response shortened [Not Recovered/Not Resolved]
  - Drug effect incomplete [Not Recovered/Not Resolved]

NARRATIVE: CASE EVENT DATE: 2017
